FAERS Safety Report 20217325 (Version 6)
Quarter: 2024Q3

REPORT INFORMATION
  Report Type: Spontaneous
  Country: US (occurrence: US)
  Receive Date: 20211222
  Receipt Date: 20240829
  Transmission Date: 20241017
  Serious: Yes (Other)
  Sender: PFIZER
  Company Number: US-PFIZER INC-202101772581

PATIENT
  Age: 43 Year
  Sex: Female

DRUGS (1)
  1. XELJANZ XR [Suspect]
     Active Substance: TOFACITINIB CITRATE
     Indication: Rheumatoid arthritis
     Dosage: 11 MG PO QD (PER ORAL DAILY)
     Route: 048

REACTIONS (5)
  - Gait disturbance [Unknown]
  - Condition aggravated [Recovering/Resolving]
  - Joint lock [Unknown]
  - Pain in extremity [Unknown]
  - Malaise [Unknown]
